FAERS Safety Report 24391637 (Version 1)
Quarter: 2024Q4

REPORT INFORMATION
  Report Type: Spontaneous
  Country: FR (occurrence: FR)
  Receive Date: 20241003
  Receipt Date: 20241003
  Transmission Date: 20250114
  Serious: Yes (Life-Threatening)
  Sender: TEVA
  Company Number: None

PATIENT
  Age: 44 Year
  Sex: Male
  Weight: 118 kg

DRUGS (2)
  1. AMOXICILLIN [Suspect]
     Active Substance: AMOXICILLIN
     Indication: Tooth abscess
     Dosage: TIME INTERVAL: TOTAL: UNK ONE SOCKET, AMOXICILLINE
     Route: 048
     Dates: start: 20240519, end: 20240519
  2. IBUPROFEN [Concomitant]
     Active Substance: IBUPROFEN
     Indication: Tooth abscess
     Dosage: DAILY INTAKE
     Route: 048
     Dates: start: 20240417

REACTIONS (1)
  - Anaphylactic shock [Recovered/Resolved]

NARRATIVE: CASE EVENT DATE: 20240519
